FAERS Safety Report 9490663 (Version 1)
Quarter: 2013Q3

REPORT INFORMATION
  Report Type: Spontaneous
  Country: US (occurrence: US)
  Receive Date: 20130830
  Receipt Date: 20130830
  Transmission Date: 20140515
  Serious: Yes (Life-Threatening, Other)
  Sender: FDA-Public Use
  Company Number: PHEH2013US018297

PATIENT
  Sex: Male

DRUGS (2)
  1. DIOVAN HCT [Suspect]
  2. DIOVAN [Suspect]

REACTIONS (6)
  - Apparent death [Unknown]
  - Fluid retention [Unknown]
  - Coma [Unknown]
  - Deafness [Unknown]
  - Skin cancer [Unknown]
  - Tinea pedis [Unknown]
